FAERS Safety Report 19269746 (Version 1)
Quarter: 2021Q2

REPORT INFORMATION
  Report Type: Spontaneous
  Country: US (occurrence: US)
  Receive Date: 20210518
  Receipt Date: 20210518
  Transmission Date: 20210717
  Serious: No
  Sender: FDA-Public Use
  Company Number: None

PATIENT
  Age: 44 Year
  Sex: Female

DRUGS (1)
  1. TALTZ [Suspect]
     Active Substance: IXEKIZUMAB
     Indication: PSORIASIS
     Dosage: ?          OTHER DOSE:80MG (1 PEN);?
     Route: 058
     Dates: start: 202104

REACTIONS (10)
  - Injection site bruising [None]
  - Pyrexia [None]
  - Urinary tract infection [None]
  - Injection site pain [None]
  - Ovarian calcification [None]
  - Vomiting [None]
  - Injection site swelling [None]
  - Injection site pruritus [None]
  - Injection site erythema [None]
  - Injection site rash [None]
